FAERS Safety Report 5315200-6 (Version None)
Quarter: 2007Q2

REPORT INFORMATION
  Report Type: 
  Country: None (occurrence: None)
  Receive Date: 20070502
  Receipt Date: 20070420
  Transmission Date: 20071010
  Serious: Yes (Other)
  Sender: FDA-Public Use
  Company Number: US-PFIZER INC-2007016902

PATIENT
  Sex: Female

DRUGS (6)
  1. CHANTIX [Suspect]
     Indication: EX-SMOKER
  2. CLINDAMYCIN HYDROCHLORIDE [Suspect]
  3. NIFEDIPINE [Concomitant]
     Indication: HYPERTENSION
  4. DIOVAN [Concomitant]
     Indication: HYPERTENSION
  5. VITAMIN CAP [Concomitant]
  6. DONNATAL [Concomitant]
     Indication: MUSCLE SPASMS

REACTIONS (8)
  - ABNORMAL DREAMS [None]
  - DENTAL OPERATION [None]
  - DIARRHOEA [None]
  - FEELING OF RELAXATION [None]
  - INFLUENZA [None]
  - MUSCLE SPASMS [None]
  - VOMITING [None]
  - WEIGHT DECREASED [None]
